FAERS Safety Report 20003131 (Version 3)
Quarter: 2022Q1

REPORT INFORMATION
  Report Type: Report from Study
  Country: CN (occurrence: None)
  Receive Date: 20211027
  Receipt Date: 20220103
  Transmission Date: 20220423
  Serious: Yes (Hospitalization)
  Sender: FDA-Public Use
  Company Number: CN-ROCHE-2941714

PATIENT
  Age: 63 Year
  Sex: Female
  Weight: 48 kg

DRUGS (15)
  1. ATEZOLIZUMAB [Suspect]
     Active Substance: ATEZOLIZUMAB
     Indication: Gastric cancer
     Dosage: ON 20/OCT/2021, THERAPY WITH ATEZOLIZUMAB WAS INTERUPTED IN RESPONSE TO ADVERSE EVENT.
     Route: 041
     Dates: start: 20210930
  2. TIRAGOLUMAB [Suspect]
     Active Substance: TIRAGOLUMAB
     Indication: Gastric cancer
     Dosage: ON 20/OCT/2021, THERAPY WITH TIRAGOLUMAB WAS INTERUPTED IN RESPONSE TO ADVERSE EVENT.
     Route: 041
     Dates: start: 20210930
  3. CAPECITABINE [Suspect]
     Active Substance: CAPECITABINE
     Indication: Gastric cancer
     Route: 048
     Dates: start: 20210930
  4. OXALIPLATIN [Suspect]
     Active Substance: OXALIPLATIN
     Indication: Gastric cancer
     Route: 065
     Dates: start: 20210930
  5. POTASSIUM CHLORIDE [Concomitant]
     Active Substance: POTASSIUM CHLORIDE
     Dates: start: 20211028
  6. MONTMORILLONITE [Concomitant]
     Active Substance: MONTMORILLONITE
     Dates: start: 20211014, end: 20211028
  7. FUROSEMIDE [Concomitant]
     Active Substance: FUROSEMIDE
     Dates: start: 20211021, end: 20211021
  8. DEXTROSE [Concomitant]
     Active Substance: DEXTROSE
     Dates: start: 20211017, end: 20211017
  9. INSULIN NOS [Concomitant]
     Active Substance: INSULIN NOS
     Dates: start: 20211017, end: 20211017
  10. INSULIN NOS [Concomitant]
     Active Substance: INSULIN NOS
     Dates: start: 20211017, end: 20211017
  11. INSULIN NOS [Concomitant]
     Active Substance: INSULIN NOS
     Dates: start: 20211020, end: 20211101
  12. SODIUM CHLORIDE [Concomitant]
     Active Substance: SODIUM CHLORIDE
     Dates: start: 20211020, end: 20211020
  13. POTASSIUM CHLORIDE [Concomitant]
     Active Substance: POTASSIUM CHLORIDE
     Dates: start: 20211020, end: 20211020
  14. ALBUMIN HUMAN [Concomitant]
     Active Substance: ALBUMIN HUMAN
     Dates: start: 20211021, end: 20211023
  15. METHYLCOBALAMIN [Concomitant]
     Active Substance: METHYLCOBALAMIN
     Dates: start: 20211101

REACTIONS (1)
  - Colitis [Recovered/Resolved]

NARRATIVE: CASE EVENT DATE: 20211009
